FAERS Safety Report 5677579-5 (Version None)
Quarter: 2008Q1

REPORT INFORMATION
  Report Type: 
  Country: None (occurrence: None)
  Receive Date: 20080324
  Receipt Date: 20080312
  Transmission Date: 20080703
  Serious: Yes (Hospitalization)
  Sender: FDA-Public Use
  Company Number: JP-AMGEN-US267062

PATIENT
  Sex: Female
  Weight: 70 kg

DRUGS (13)
  1. ENBREL [Suspect]
     Indication: RHEUMATOID ARTHRITIS
     Route: 058
     Dates: start: 20070510
  2. LOXONIN [Concomitant]
     Route: 048
  3. MUCOSTA [Concomitant]
     Route: 048
  4. PREDNISOLONE [Concomitant]
     Route: 048
  5. AMLODIN [Concomitant]
     Route: 048
  6. FAMOTIDINE [Concomitant]
     Route: 048
  7. EMABERIN L [Concomitant]
     Route: 048
  8. OLMESARTAN MEDOXOMIL [Concomitant]
     Route: 048
  9. FUROSEMIDE [Concomitant]
     Dosage: 40 MG EVERY 1 DEC
     Route: 048
  10. SPIRONOLACTONE [Concomitant]
     Route: 048
  11. EPADEL [Concomitant]
     Route: 048
  12. RIMATIL [Concomitant]
     Route: 048
  13. PANALDINE [Concomitant]
     Route: 048

REACTIONS (2)
  - PNEUMONIA [None]
  - SKIN ULCER [None]
